FAERS Safety Report 16215680 (Version 2)
Quarter: 2019Q2

REPORT INFORMATION
  Report Type: Spontaneous
  Country: PT (occurrence: PT)
  Receive Date: 20190419
  Receipt Date: 20190516
  Transmission Date: 20190711
  Serious: Yes (Hospitalization, Other)
  Sender: FDA-Public Use
  Company Number: PT-009507513-1904PRT007229

PATIENT
  Age: 15 Month
  Sex: Male
  Weight: 10 kg

DRUGS (5)
  1. SINGULAIR [Suspect]
     Active Substance: MONTELUKAST SODIUM
     Indication: OTITIS MEDIA
     Dosage: 1 SACHET INVOLVED IN THE FRUIT, AT DINNER
     Route: 048
     Dates: start: 20181127, end: 20190211
  2. ZYRTEC [Suspect]
     Active Substance: CETIRIZINE HYDROCHLORIDE
     Indication: OTITIS MEDIA
     Dosage: 2.5 ML AFTER DINNER
     Route: 048
     Dates: start: 20181127, end: 20190211
  3. FERRUM HAUSMANN (IRON POLYMALTOSE) [Concomitant]
     Active Substance: IRON POLYMALTOSE
     Dosage: UNK
  4. HAEMOPHILUS INFLUENZAE LYSATE (+) KLEBSIELLA PNEUMONIAE LYSATE (+) NEI (LANTIGEN B) [Suspect]
     Active Substance: INVESTIGATIONAL PRODUCT
     Indication: PROPHYLAXIS
     Dosage: 7 DROPS UNDER FASTING, AND 7 DROPS BEFORE DINNER
     Route: 048
     Dates: start: 20181127, end: 20190209
  5. VIGANTOL [COLECALCIFEROL] [Concomitant]
     Active Substance: CHOLECALCIFEROL
     Dosage: UNK

REACTIONS (2)
  - Supplementation therapy [Recovered/Resolved]
  - Eye movement disorder [Recovered/Resolved]

NARRATIVE: CASE EVENT DATE: 20190210
